FAERS Safety Report 16691935 (Version 3)
Quarter: 2021Q1

REPORT INFORMATION
  Report Type: Spontaneous
  Country: SK (occurrence: SK)
  Receive Date: 20190812
  Receipt Date: 20210121
  Transmission Date: 20210419
  Serious: Yes (Life-Threatening, Disabling, Other)
  Sender: FDA-Public Use
  Company Number: SK-MYLANLABS-2019M1055129

PATIENT
  Age: 50 Year
  Sex: Male

DRUGS (6)
  1. ALPRAZOLAM. [Concomitant]
     Active Substance: ALPRAZOLAM
     Indication: DEPRESSION
     Dosage: 0.25 MG, QD
     Route: 048
  2. ZOLPIDEM [Suspect]
     Active Substance: ZOLPIDEM TARTRATE
     Indication: DEPRESSION
     Dosage: 60 MG, QD
     Route: 048
  3. ZOLPIDEM [Suspect]
     Active Substance: ZOLPIDEM TARTRATE
     Indication: ANXIETY
     Dosage: UNK
     Route: 048
  4. TIANEPTINE [Suspect]
     Active Substance: TIANEPTINE
     Indication: ANXIETY
     Dosage: UNK
     Route: 048
  5. ALPRAZOLAM. [Concomitant]
     Active Substance: ALPRAZOLAM
     Indication: ANXIETY
     Dosage: UNK
  6. TIANEPTINE [Suspect]
     Active Substance: TIANEPTINE
     Indication: MAJOR DEPRESSION
     Dosage: UNK
     Route: 048

REACTIONS (21)
  - Feeling abnormal [Unknown]
  - Weight decreased [Unknown]
  - Dyssomnia [Unknown]
  - Decreased appetite [Recovered/Resolved]
  - Asthenia [Unknown]
  - Psychotic disorder [Recovered/Resolved]
  - Anhedonia [Recovered/Resolved]
  - Amimia [Recovered/Resolved]
  - Bradyphrenia [Unknown]
  - Reduced facial expression [Recovered/Resolved]
  - Suicidal ideation [Unknown]
  - Bradykinesia [Recovered/Resolved]
  - Abulia [Recovered/Resolved]
  - Irritability [Recovered/Resolved]
  - Depressed mood [Recovered/Resolved]
  - Tension [Unknown]
  - Insomnia [Recovered/Resolved]
  - Thinking abnormal [Unknown]
  - Drug ineffective [Unknown]
  - Anxiety [Recovered/Resolved]
  - Depression [Unknown]
